FAERS Safety Report 5083465-4 (Version None)
Quarter: 2006Q3

REPORT INFORMATION
  Report Type: 
  Country: None (occurrence: None)
  Receive Date: 20060720
  Receipt Date: 20050603
  Transmission Date: 20061208
  Serious: Yes (Hospitalization)
  Sender: FDA-Public Use
  Company Number: 2004107961

PATIENT
  Sex: Male

DRUGS (2)
  1. CELEBREX [Suspect]
     Indication: ARTHRITIS
  2. VIOXX [Concomitant]

REACTIONS (2)
  - INTERVERTEBRAL DISC DEGENERATION [None]
  - ULCER [None]
